FAERS Safety Report 12460165 (Version 1)
Quarter: 2016Q2

REPORT INFORMATION
  Report Type: Spontaneous
  Country: GB (occurrence: GB)
  Receive Date: 20160613
  Receipt Date: 20160613
  Transmission Date: 20160815
  Serious: Yes (Other)
  Sender: FDA-Public Use
  Company Number: GB-PFIZER INC-2016290900

PATIENT
  Sex: Male

DRUGS (4)
  1. GLUCOSE [Suspect]
     Active Substance: DEXTROSE
     Indication: MEDICATION DILUTION
     Dosage: UNK
     Route: 065
     Dates: start: 20160518
  2. POTASSIUM CHLORIDE. [Suspect]
     Active Substance: POTASSIUM CHLORIDE
     Indication: MEDICATION DILUTION
     Dosage: 20 MMOL, UNK
     Route: 065
     Dates: start: 20160518
  3. MESNA. [Suspect]
     Active Substance: MESNA
     Dosage: 1300 MG, UNK
     Route: 065
     Dates: start: 20160518
  4. SODIUM CHLORIDE. [Suspect]
     Active Substance: SODIUM CHLORIDE
     Indication: MEDICATION DILUTION
     Dosage: UNK
     Route: 065
     Dates: start: 20160518

REACTIONS (3)
  - Extravasation [Recovering/Resolving]
  - Administration site erythema [Recovering/Resolving]
  - Administration site swelling [Recovering/Resolving]

NARRATIVE: CASE EVENT DATE: 20160518
